FAERS Safety Report 5593173-9 (Version None)
Quarter: 2008Q1

REPORT INFORMATION
  Report Type: 
  Country: None (occurrence: None)
  Receive Date: 20080114
  Receipt Date: 20080114
  Transmission Date: 20080703
  Serious: Yes (Life-Threatening, Hospitalization)
  Sender: FDA-Public Use
  Company Number: None

PATIENT
  Age: 49 Year
  Sex: Male
  Weight: 124.7392 kg

DRUGS (1)
  1. OLANZAPINE [Suspect]
     Indication: DEPRESSION
     Dosage: 5 MG DAILY PO
     Route: 048

REACTIONS (1)
  - DIABETIC KETOACIDOSIS [None]
